FAERS Safety Report 8564433-4 (Version None)
Quarter: 2012Q3

REPORT INFORMATION
  Report Type: 
  Country: None (occurrence: None)
  Receive Date: 20120803
  Receipt Date: 20120725
  Transmission Date: 20120928
  Serious: Yes (Hospitalization, Other)
  Sender: FDA-Public Use
  Company Number: BE-CELGENEUS-013-21880-12053349

PATIENT
  Sex: Female
  Weight: 62 kg

DRUGS (39)
  1. REVLIMID [Suspect]
     Route: 048
     Dates: start: 20110203, end: 20110420
  2. DEXAMETHASONE [Suspect]
     Route: 048
     Dates: start: 20110624, end: 20110720
  3. DEXAMETHASONE [Suspect]
     Route: 065
     Dates: start: 20120704
  4. ASPIRIN [Concomitant]
     Dosage: 80 MILLIGRAM
     Route: 048
     Dates: start: 20120718, end: 20120718
  5. CRANBERRY EXTRACT [Concomitant]
     Route: 065
     Dates: start: 20110301
  6. RED BLOOD CELLS [Concomitant]
     Route: 065
     Dates: start: 20111018
  7. PARACODEINE [Concomitant]
     Dosage: 1 MILLIGRAM
     Route: 048
     Dates: start: 20120717, end: 20120718
  8. OMEPRAZOLE [Concomitant]
     Dosage: 2000 MILLIGRAM
     Route: 041
     Dates: start: 20120717, end: 20120719
  9. REVLIMID [Suspect]
     Dosage: 10 MILLIGRAM
     Route: 048
     Dates: start: 20120426
  10. PANTOPRAZOLE [Concomitant]
     Route: 065
     Dates: start: 20120418
  11. REVLIMID [Suspect]
     Dosage: 10 MILLIGRAM
     Route: 048
     Dates: start: 20110624, end: 20111228
  12. REVLIMID [Suspect]
     Dosage: 10 MILLIGRAM
     Route: 048
     Dates: start: 20120530, end: 20120627
  13. DEXAMETHASONE [Suspect]
     Route: 048
     Dates: start: 20120426
  14. DEXAMETHASONE [Suspect]
     Dosage: 2.8571 MILLIGRAM
     Route: 048
     Dates: start: 20120531
  15. FLEXIUM [Concomitant]
     Route: 065
     Dates: start: 20120213
  16. MEROPENEM [Concomitant]
     Route: 065
     Dates: start: 20120419, end: 20120430
  17. REVLIMID [Suspect]
     Dosage: 25 MILLIGRAM
     Route: 048
     Dates: start: 20120202
  18. REVLIMID [Suspect]
     Dosage: 10 MILLIGRAM
     Route: 048
     Dates: start: 20120531
  19. SYMBICORT [Concomitant]
     Indication: COUGH
     Dosage: 4 DOSAGE FORMS
     Route: 055
     Dates: start: 20120501, end: 20120501
  20. FLEXIUM [Concomitant]
     Route: 065
     Dates: start: 20101002, end: 20111102
  21. CETAVLEX [Concomitant]
     Route: 065
     Dates: start: 20120417
  22. POLYETHYLENE GLYCOL [Concomitant]
     Route: 065
     Dates: start: 20120430
  23. SODIUM CHLORIDE [Concomitant]
     Route: 065
     Dates: start: 20120709
  24. DUOVENT [Concomitant]
     Indication: COUGH
     Dosage: 1 OTHER
     Dates: start: 20120501, end: 20120718
  25. REVLIMID [Suspect]
     Indication: MULTIPLE MYELOMA
     Dosage: 10 MILLIGRAM
     Route: 048
     Dates: start: 20110105
  26. REVLIMID [Suspect]
     Dosage: 15 MILLIGRAM
     Route: 048
     Dates: start: 20110428, end: 20110616
  27. DEXAMETHASONE [Suspect]
     Route: 065
     Dates: start: 20120702
  28. ASPIRIN [Concomitant]
     Indication: THROMBOSIS
     Dosage: 80 GRAM
     Route: 041
     Dates: start: 20110105
  29. BISOPROLOL FUMARATE [Concomitant]
     Route: 065
     Dates: start: 20060101
  30. R CALM CREME [Concomitant]
     Route: 065
     Dates: start: 20120213
  31. RED BLOOD CELLS [Concomitant]
     Dosage: 1
     Route: 041
     Dates: start: 20120717, end: 20120717
  32. PLATELETS [Concomitant]
     Indication: THROMBOCYTOPENIA
     Route: 041
     Dates: start: 20120717, end: 20120719
  33. PLATELETS [Concomitant]
     Route: 065
     Dates: start: 20120327
  34. DEXAMETHASONE [Suspect]
     Indication: MULTIPLE MYELOMA
     Route: 048
     Dates: start: 20110105
  35. DEXAMETHASONE [Suspect]
     Dosage: 2.8571 MILLIGRAM
     Route: 048
     Dates: end: 20120627
  36. REVLIMID [Suspect]
     Dosage: 15 MILLIGRAM
     Route: 048
     Dates: start: 20120105, end: 20120125
  37. DEXAMETHASONE [Suspect]
     Route: 065
     Dates: start: 20120703
  38. WHOLE BLOOD [Concomitant]
     Indication: PANCYTOPENIA
     Route: 065
  39. PARACODEINE [Concomitant]
     Indication: PAIN
     Dosage: .5 MILLIGRAM
     Route: 048
     Dates: start: 20120718, end: 20120719

REACTIONS (6)
  - PYREXIA [None]
  - LEUKOPENIA [None]
  - ANAEMIA [None]
  - FEBRILE NEUTROPENIA [None]
  - THROMBOCYTOPENIA [None]
  - LUNG SQUAMOUS CELL CARCINOMA STAGE UNSPECIFIED [None]
